FAERS Safety Report 9352674 (Version 1)
Quarter: 2013Q2

REPORT INFORMATION
  Report Type: Spontaneous
  Country: GB (occurrence: GB)
  Receive Date: 20130618
  Receipt Date: 20130618
  Transmission Date: 20140414
  Serious: Yes (Life-Threatening, Other)
  Sender: FDA-Public Use
  Company Number: GB-009507513-1306GBR006249

PATIENT
  Age: 73 Year
  Sex: Male
  Weight: 65 kg

DRUGS (7)
  1. SITAGLIPTIN PHOSPHATE [Suspect]
     Indication: TYPE 1 DIABETES MELLITUS
     Dosage: 100 MG
     Route: 048
     Dates: start: 20120228, end: 20130530
  2. ASPIRIN [Concomitant]
  3. BISOPROLOL [Concomitant]
  4. CIALIS [Concomitant]
  5. LOSARTAN POTASSIUM [Concomitant]
  6. SOLIFENACIN SUCCINATE [Concomitant]
  7. SPIRONOLACTONE [Concomitant]

REACTIONS (1)
  - Pancreatic carcinoma [Unknown]
